FAERS Safety Report 12651406 (Version 1)
Quarter: 2016Q3

REPORT INFORMATION
  Report Type: Spontaneous
  Country: US (occurrence: US)
  Receive Date: 20160815
  Receipt Date: 20160815
  Transmission Date: 20161109
  Serious: No
  Sender: FDA-Public Use
  Company Number: US-BEH-2016072218

PATIENT
  Sex: Female
  Weight: 72.56 kg

DRUGS (17)
  1. CALCIUM + D DUETTO [Concomitant]
  2. CYCLOBENZAPRINE [Concomitant]
     Active Substance: CYCLOBENZAPRINE
  3. POTASSIUM [Concomitant]
     Active Substance: POTASSIUM
  4. ACETAMINOPHEN. [Concomitant]
     Active Substance: ACETAMINOPHEN
  5. IBUPROFEN. [Concomitant]
     Active Substance: IBUPROFEN
  6. PROGESTERONE. [Concomitant]
     Active Substance: PROGESTERONE
  7. BIOTIN [Concomitant]
     Active Substance: BIOTIN
  8. RELPAX [Concomitant]
     Active Substance: ELETRIPTAN HYDROBROMIDE
  9. CLARITIN [Concomitant]
     Active Substance: LORATADINE
  10. PROBIOTIC                          /06395501/ [Concomitant]
     Active Substance: BIFIDOBACTERIUM ANIMALIS SUBSP. LACTIS
  11. EPIPEN [Concomitant]
     Active Substance: EPINEPHRINE
  12. ORPHENADRINE [Concomitant]
     Active Substance: ORPHENADRINE
  13. XANAX [Concomitant]
     Active Substance: ALPRAZOLAM
  14. ZOLOFT [Concomitant]
     Active Substance: SERTRALINE HYDROCHLORIDE
  15. LEVOXYL [Concomitant]
     Active Substance: LEVOTHYROXINE SODIUM
  16. HIZENTRA [Suspect]
     Active Substance: HUMAN IMMUNOGLOBULIN G
     Indication: HYPOGAMMAGLOBULINAEMIA
     Dosage: 10 G, QW
     Route: 058
     Dates: start: 20160321
  17. DIPHENHYDRAMINE. [Concomitant]
     Active Substance: DIPHENHYDRAMINE

REACTIONS (1)
  - Headache [Unknown]
